FAERS Safety Report 11120587 (Version 2)
Quarter: 2016Q2

REPORT INFORMATION
  Report Type: Spontaneous
  Country: IT (occurrence: IT)
  Receive Date: 20150519
  Receipt Date: 20160428
  Transmission Date: 20160815
  Serious: Yes (Hospitalization)
  Sender: FDA-Public Use
  Company Number: IT-ROCHE-1578726

PATIENT
  Sex: Female

DRUGS (9)
  1. KETOROLAC [Concomitant]
     Active Substance: KETOROLAC\KETOROLAC TROMETHAMINE
  2. TRESIBA [Concomitant]
     Active Substance: INSULIN DEGLUDEC
  3. PANTORC [Concomitant]
     Active Substance: PANTOPRAZOLE SODIUM
     Dosage: 14 GASTRO-RESISTANT TABLETS, 40 MG
     Route: 048
  4. UNASYN (ITALY) [Suspect]
     Active Substance: SULTAMICILLIN
     Indication: MULTIPLE INJURIES
     Dosage: 500 MG + 1 G/3.2ML POWDER AND SOLVENT FOR SOLUTION
     Route: 042
     Dates: start: 20150430, end: 20150502
  5. PERFALGAN [Concomitant]
     Active Substance: ACETAMINOPHEN
     Dosage: 10 MG/ML 12 X 50 ML VIALS
     Route: 065
  6. CLEXANE [Concomitant]
     Active Substance: ENOXAPARIN SODIUM
     Dosage: 4000 I.U. AXA/0.4 ML SOLUTION FOR INJECTION
     Route: 065
  7. ROCEFIN [Suspect]
     Active Substance: CEFTRIAXONE SODIUM
     Indication: MULTIPLE INJURIES
     Dosage: 1G/10ML POWDER AND SOLVENT FOR SOLUTION FOR INJECT
     Route: 042
     Dates: start: 20150429, end: 20150430
  8. MORPHINE HYDROCHLORIDE [Concomitant]
     Active Substance: MORPHINE HYDROCHLORIDE
  9. HUMALOG [Concomitant]
     Active Substance: INSULIN LISPRO

REACTIONS (3)
  - Urticaria [Unknown]
  - Respiratory failure [Unknown]
  - Dyspnoea [Unknown]
